FAERS Safety Report 4542219-5 (Version None)
Quarter: 2004Q4

REPORT INFORMATION
  Report Type: 
  Country: None (occurrence: None)
  Receive Date: 20041230
  Receipt Date: 20041221
  Transmission Date: 20050328
  Serious: Yes (Life-Threatening, Other)
  Sender: FDA-Public Use
  Company Number: US-JNJFOC-20041101887

PATIENT
  Sex: Female
  Weight: 73.48 kg

DRUGS (1)
  1. REMICADE [Suspect]
     Route: 042

REACTIONS (1)
  - COLON CANCER METASTATIC [None]
